FAERS Safety Report 4915076-2 (Version None)
Quarter: 2006Q1

REPORT INFORMATION
  Report Type: 
  Country: None (occurrence: None)
  Receive Date: 20060215
  Receipt Date: 20060215
  Transmission Date: 20060701
  Serious: Yes (Hospitalization)
  Sender: FDA-Public Use
  Company Number: None

PATIENT
  Sex: Female

DRUGS (11)
  1. LISINOPRIL [Suspect]
     Indication: HYPERTENSION
     Dosage: 10 MG PO
     Route: 048
     Dates: start: 20051130
  2. COLACE [Concomitant]
  3. ECOTRIN [Concomitant]
  4. DYAZIDE [Concomitant]
  5. LOVASTATIN [Concomitant]
  6. Z-BEC [Concomitant]
  7. IRON [Concomitant]
  8. TYLENOL [Concomitant]
  9. MOM [Concomitant]
  10. DULCOLAX [Concomitant]
  11. MAG CITRATE [Concomitant]

REACTIONS (5)
  - ASTHENIA [None]
  - BODY TEMPERATURE INCREASED [None]
  - DIZZINESS [None]
  - HYPERHIDROSIS [None]
  - HYPOTENSION [None]
